FAERS Safety Report 8921481 (Version 2)
Quarter: 2013Q1

REPORT INFORMATION
  Report Type: Spontaneous
  Country: FR (occurrence: FR)
  Receive Date: 20121121
  Receipt Date: 20130114
  Transmission Date: 20140127
  Serious: Yes (Other)
  Sender: FDA-Public Use
  Company Number: FR-ABBOTT-12P-056-1009239-00

PATIENT
  Sex: Female
  Weight: 41 kg

DRUGS (2)
  1. HUMIRA [Suspect]
     Indication: VASCULITIS
     Route: 058
     Dates: start: 20120706, end: 201210
  2. KEPPRA [Concomitant]

REACTIONS (7)
  - Convulsion [Recovered/Resolved]
  - Pain in extremity [Unknown]
  - Musculoskeletal pain [Unknown]
  - Headache [Unknown]
  - Pyrexia [Unknown]
  - Drug ineffective [Unknown]
  - Arthralgia [Unknown]
